FAERS Safety Report 8445070-9 (Version None)
Quarter: 2012Q2

REPORT INFORMATION
  Report Type: 
  Country: None (occurrence: None)
  Receive Date: 20120618
  Receipt Date: 20120612
  Transmission Date: 20120825
  Serious: Yes (Death, Hospitalization)
  Sender: FDA-Public Use
  Company Number: AU-ACTELION-A-CH2012-64749

PATIENT
  Sex: Male

DRUGS (1)
  1. TRACLEER [Suspect]
     Indication: PULMONARY ARTERIAL HYPERTENSION
     Dosage: 125 MG, BID
     Route: 048
     Dates: start: 20120209

REACTIONS (4)
  - DISEASE PROGRESSION [None]
  - INTERSTITIAL LUNG DISEASE [None]
  - SUDDEN DEATH [None]
  - PULMONARY ARTERIAL HYPERTENSION [None]
